APPROVED DRUG PRODUCT: NORLESTRIN FE 1/50
Active Ingredient: ETHINYL ESTRADIOL; FERROUS FUMARATE; NORETHINDRONE ACETATE
Strength: 0.05MG;75MG;1MG
Dosage Form/Route: TABLET;ORAL-28
Application: N016766 | Product #001
Applicant: PARKE DAVIS LABORATORIES DIV WARNER LAMBERT CO
Approved: Approved Prior to Jan 1, 1982 | RLD: No | RS: No | Type: DISCN